FAERS Safety Report 7385897-8 (Version None)
Quarter: 2011Q1

REPORT INFORMATION
  Report Type: 
  Country: None (occurrence: None)
  Receive Date: 20110331
  Receipt Date: 20110324
  Transmission Date: 20110831
  Serious: Yes (Other)
  Sender: FDA-Public Use
  Company Number: US-PFIZER INC-2011065899

PATIENT
  Sex: Male

DRUGS (3)
  1. DEPAKOTE [Concomitant]
     Dosage: UNK
  2. LYRICA [Suspect]
     Dosage: 5 75 MG CAPSULES AND 1 50 MG CAPSULE PER DAY
  3. NEURONTIN [Suspect]
     Indication: NEUROPATHY PERIPHERAL
     Dosage: UNK

REACTIONS (5)
  - VISION BLURRED [None]
  - DIZZINESS [None]
  - PLATELET COUNT DECREASED [None]
  - INSOMNIA [None]
  - DRUG INEFFECTIVE [None]
